FAERS Safety Report 6156634-X (Version None)
Quarter: 2009Q2

REPORT INFORMATION
  Report Type: 
  Country: None (occurrence: None)
  Receive Date: 20090416
  Receipt Date: 20090408
  Transmission Date: 20091009
  Serious: Yes (Death)
  Sender: FDA-Public Use
  Company Number: BR-ROCHE-626317

PATIENT
  Sex: Female
  Weight: 56.9 kg

DRUGS (1)
  1. CAPECITABINE [Suspect]
     Route: 065

REACTIONS (2)
  - PLEURAL EFFUSION [None]
  - RESPIRATORY ARREST [None]
